FAERS Safety Report 9235749 (Version 2)
Quarter: 2013Q3

REPORT INFORMATION
  Report Type: Spontaneous
  Country: US (occurrence: US)
  Receive Date: 20130417
  Receipt Date: 20130826
  Transmission Date: 20140515
  Serious: Yes (Hospitalization)
  Sender: FDA-Public Use
  Company Number: US-BAYER-2013-047857

PATIENT
  Age: 20 Year
  Sex: Female

DRUGS (2)
  1. YAZ [Suspect]
     Indication: ACNE
     Dosage: UNK
     Dates: start: 200803, end: 200807
  2. YASMIN [Suspect]

REACTIONS (5)
  - Cerebrovascular accident [None]
  - Pain [None]
  - Pain [None]
  - Hemiplegia [None]
  - Mental disorder [None]
